FAERS Safety Report 22385738 (Version 1)
Quarter: 2023Q2

REPORT INFORMATION
  Report Type: Spontaneous
  Country: US (occurrence: US)
  Receive Date: 20230530
  Receipt Date: 20230530
  Transmission Date: 20230721
  Serious: No
  Sender: FDA-Public Use
  Company Number: US-PFIZER INC-PV202300092146

PATIENT
  Age: 77 Year
  Sex: Female
  Weight: 51.247 kg

DRUGS (3)
  1. IBRANCE [Suspect]
     Active Substance: PALBOCICLIB
     Indication: Breast cancer metastatic
     Dosage: UNK
     Route: 048
     Dates: start: 2021
  2. IBRANCE [Suspect]
     Active Substance: PALBOCICLIB
     Dosage: 125 MG, CYCLIC, 21 DAYS ON, 7 OFF
     Dates: start: 20230301, end: 20230321
  3. AROMASIN [Concomitant]
     Active Substance: EXEMESTANE
     Indication: Breast cancer
     Dosage: UNK
     Route: 048
     Dates: start: 20210701

REACTIONS (1)
  - Pleural effusion [Unknown]

NARRATIVE: CASE EVENT DATE: 20211101
